FAERS Safety Report 12507576 (Version 1)
Quarter: 2016Q2

REPORT INFORMATION
  Report Type: Spontaneous
  Country: US (occurrence: None)
  Receive Date: 20160628
  Receipt Date: 20160628
  Transmission Date: 20160815
  Serious: No
  Sender: FDA-Public Use
  Company Number: None

PATIENT
  Age: 76 Year
  Sex: Female

DRUGS (1)
  1. IBRANCE [Suspect]
     Active Substance: PALBOCICLIB
     Indication: PRODUCT USED FOR UNKNOWN INDICATION
     Dosage: 125 MG UD (DAILY FOR 21 DAYS ON AND 7 DAYS OFF) PO
     Route: 048
     Dates: start: 20160516

REACTIONS (6)
  - Depressed level of consciousness [None]
  - Drug intolerance [None]
  - Nausea [None]
  - Abdominal pain upper [None]
  - Product size issue [None]
  - Somnolence [None]

NARRATIVE: CASE EVENT DATE: 20160601
